FAERS Safety Report 7647496-X (Version None)
Quarter: 2011Q3

REPORT INFORMATION
  Report Type: 
  Country: None (occurrence: None)
  Receive Date: 20110801
  Receipt Date: 20110712
  Transmission Date: 20111222
  Serious: Yes (Hospitalization)
  Sender: FDA-Public Use
  Company Number: US-GLAXOSMITHKLINE-A0870180A

PATIENT
  Age: 67 Year
  Sex: Male
  Weight: 125.9 kg

DRUGS (6)
  1. AVANDIA [Suspect]
     Indication: DIABETES MELLITUS
     Dosage: 8MG PER DAY
     Route: 048
     Dates: start: 20020415, end: 20070630
  2. GLYBURIDE [Concomitant]
  3. ALTACE [Concomitant]
  4. LIPITOR [Concomitant]
  5. ALPRAZOLAM [Concomitant]
  6. INSULIN [Concomitant]

REACTIONS (3)
  - TRANSIENT ISCHAEMIC ATTACK [None]
  - CORONARY ARTERY BYPASS [None]
  - MYOCARDIAL INFARCTION [None]
